FAERS Safety Report 6360036-0 (Version None)
Quarter: 2009Q3

REPORT INFORMATION
  Report Type: 
  Country: None (occurrence: None)
  Receive Date: 20090917
  Receipt Date: 20090908
  Transmission Date: 20100115
  Serious: Yes (Other)
  Sender: FDA-Public Use
  Company Number: PHHY2009DE38806

PATIENT
  Sex: Female

DRUGS (3)
  1. FEMARA [Suspect]
     Indication: BREAST CANCER
     Dosage: 2.5 MG DAILY
     Route: 048
     Dates: start: 20080901, end: 20090801
  2. CALCIUM [Concomitant]
  3. BISPHOSPHONATES [Concomitant]
     Indication: PROPHYLAXIS

REACTIONS (1)
  - EPILEPSY [None]
